FAERS Safety Report 19285351 (Version 1)
Quarter: 2021Q2

REPORT INFORMATION
  Report Type: Spontaneous
  Country: US (occurrence: US)
  Receive Date: 20210521
  Receipt Date: 20210521
  Transmission Date: 20210717
  Serious: No
  Sender: FDA-Public Use
  Company Number: US-CELLTRION INC.-2021US006159

PATIENT

DRUGS (2)
  1. TRUXIMA [Suspect]
     Active Substance: RITUXIMAB-ABBS
     Indication: IMMUNE THROMBOCYTOPENIA
     Dosage: 787.5 MG INTRAVENOUSLY DAY 1, 8, 15, AND 22 PRN
     Route: 042
     Dates: start: 20210504
  2. TRUXIMA [Suspect]
     Active Substance: RITUXIMAB-ABBS
     Dosage: PLANNED THERAPY SCHEDULE FOR 11 MAY 2021: 787.5 MG INTRAVENOUSLY DAY 1, 8, 15, AND 22 PRN
     Route: 042

REACTIONS (1)
  - Off label use [Unknown]

NARRATIVE: CASE EVENT DATE: 20210504
